FAERS Safety Report 4508355-4 (Version None)
Quarter: 2004Q4

REPORT INFORMATION
  Report Type: 
  Country: None (occurrence: None)
  Receive Date: 20041118
  Receipt Date: 20041103
  Transmission Date: 20050328
  Serious: Yes (Other)
  Sender: FDA-Public Use
  Company Number: PHFR2004GB04116

PATIENT
  Age: 79 Year
  Sex: Male

DRUGS (1)
  1. VISUDYNE [Suspect]

REACTIONS (1)
  - BLADDER CANCER [None]
